FAERS Safety Report 8590713-2 (Version None)
Quarter: 2012Q3

REPORT INFORMATION
  Report Type: 
  Country: None (occurrence: None)
  Receive Date: 20120701
  Receipt Date: 20120716
  Transmission Date: 20120928
  Serious: Yes (Death, Other)
  Sender: FDA-Public Use
  Company Number: 20120466

PATIENT
  Age: 47 Year
  Sex: Female

DRUGS (6)
  1. DEXAMETHASONE [Suspect]
     Dosage: 12 MG AND 4 MG, ORAL
     Route: 048
  2. BENDAMUSTINE HYDROCHLORIDE [Suspect]
     Dosage: 100 OR 120 MG/M2 ON DAYS 1-2 INTRAVENOUS
     Route: 042
  3. ERLOTINIB HYDROCHLORIDE [Suspect]
     Dosage: 100 OR 150 MG ON DAYS 5-21, ORAL
     Route: 048
  4. DEXAMETHASONE SODIUM PHOSPHATE [Suspect]
     Indication: PREMEDICATION
     Dosage: 4 MG/ML
  5. PACLITAXEL [Concomitant]
  6. BEVACIZUMAB [Concomitant]

REACTIONS (2)
  - PNEUMOCYSTIS JIROVECI PNEUMONIA [None]
  - LYMPHOPENIA [None]
